FAERS Safety Report 9611272 (Version 1)
Quarter: 2013Q4

REPORT INFORMATION
  Report Type: Report from Study
  Country: DE (occurrence: PL)
  Receive Date: 20131010
  Receipt Date: 20131010
  Transmission Date: 20140711
  Serious: Yes (Hospitalization)
  Sender: FDA-Public Use
  Company Number: DE-ACTELION-A-NJ2013-89670

PATIENT
  Age: 58 Year
  Sex: Female

DRUGS (2)
  1. VENTAVIS [Suspect]
     Indication: PULMONARY ARTERIAL HYPERTENSION
     Dosage: 40 MCG, UNK
     Route: 055
     Dates: start: 20121126, end: 201302
  2. SILDENAFIL [Concomitant]
     Dosage: UNK
     Dates: start: 201202

REACTIONS (6)
  - Dehydration [Unknown]
  - Vomiting [Unknown]
  - Influenza [Recovered/Resolved]
  - Vomiting [Recovered/Resolved]
  - Drug administration error [Unknown]
  - Nausea [Unknown]
